FAERS Safety Report 6374946-1 (Version None)
Quarter: 2009Q3

REPORT INFORMATION
  Report Type: 
  Country: None (occurrence: None)
  Receive Date: 20090924
  Receipt Date: 20090727
  Transmission Date: 20100115
  Serious: No
  Sender: FDA-Public Use
  Company Number: US-ASTRAZENECA-2009UW21370

PATIENT
  Age: 75 Year
  Sex: Female

DRUGS (9)
  1. SEROQUEL [Suspect]
     Route: 048
  2. HYDROCHLOROTHIAZIDE [Concomitant]
  3. LEVOTHYROXINE SODIUM [Concomitant]
  4. COREG [Concomitant]
  5. CARVEDILOL [Concomitant]
  6. SIMVASTATIN [Concomitant]
  7. NORVASC [Concomitant]
  8. PLAVIX [Concomitant]
  9. OMEPRAZOLE [Concomitant]

REACTIONS (3)
  - MEDICATION ERROR [None]
  - SOMNOLENCE [None]
  - TONGUE DISORDER [None]
